FAERS Safety Report 6004532-4 (Version None)
Quarter: 2008Q4

REPORT INFORMATION
  Report Type: 
  Country: None (occurrence: None)
  Receive Date: 20081216
  Receipt Date: 20081204
  Transmission Date: 20090506
  Serious: Yes (Life-Threatening, Hospitalization)
  Sender: FDA-Public Use
  Company Number: DE-ROCHE-601279

PATIENT
  Sex: Male
  Weight: 85 kg

DRUGS (3)
  1. CAPECITABINE [Suspect]
     Route: 048
     Dates: start: 20081126, end: 20081203
  2. CISPLATIN [Suspect]
     Route: 042
     Dates: start: 20081126
  3. DOCETAXEL [Suspect]
     Route: 042
     Dates: start: 20081126

REACTIONS (1)
  - LARGE INTESTINE PERFORATION [None]
